FAERS Safety Report 9764601 (Version 11)
Quarter: 2014Q3

REPORT INFORMATION
  Report Type: Report from Study
  Country: AU (occurrence: AU)
  Receive Date: 20131217
  Receipt Date: 20140819
  Transmission Date: 20150326
  Serious: Yes (Hospitalization)
  Sender: FDA-Public Use
  Company Number: AU-TEVA-445307USA

PATIENT
  Age: 79 Year
  Sex: Female
  Weight: 65.6 kg

DRUGS (15)
  1. IBRUTINIB/PLACEBO [Suspect]
     Active Substance: IBRUTINIB
     Indication: MANTLE CELL LYMPHOMA
     Route: 048
     Dates: start: 20131107
  2. IBRUTINIB/PLACEBO [Suspect]
     Active Substance: IBRUTINIB
     Route: 048
     Dates: start: 20131213
  3. FLUCONAZOLE. [Concomitant]
     Active Substance: FLUCONAZOLE
  4. BENDAMUSTINE [Suspect]
     Active Substance: BENDAMUSTINE
     Indication: MANTLE CELL LYMPHOMA
     Route: 042
     Dates: start: 20131107
  5. IRBESARTAN. [Concomitant]
     Active Substance: IRBESARTAN
  6. RITUXIMAB [Suspect]
     Active Substance: RITUXIMAB
     Indication: MANTLE CELL LYMPHOMA
     Dosage: 18.75 MILLIGRAM DAILY;
     Route: 042
     Dates: start: 20131107
  7. BENDAMUSTINE [Suspect]
     Active Substance: BENDAMUSTINE
     Route: 042
     Dates: start: 20131206
  8. IBRUTINIB/PLACEBO [Suspect]
     Active Substance: IBRUTINIB
     Route: 048
     Dates: start: 20131117
  9. SULFAMETHOXAZOLE AND TRIMETHOPRIM [Concomitant]
     Active Substance: SULFAMETHOXAZOLE\TRIMETHOPRIM
  10. IBRUTINIB [Suspect]
     Active Substance: IBRUTINIB
     Dosage: 560 MILLIGRAM DAILY;
     Route: 042
     Dates: start: 20131121
  11. BENDAMUSTINE [Suspect]
     Active Substance: BENDAMUSTINE
     Route: 042
  12. VALTREX [Concomitant]
     Active Substance: VALACYCLOVIR HYDROCHLORIDE
  13. RITUXIMAB [Suspect]
     Active Substance: RITUXIMAB
     Dosage: 18.75 MILLIGRAM DAILY;
     Route: 042
     Dates: start: 20131205
  14. IBRUTINIB [Suspect]
     Active Substance: IBRUTINIB
     Indication: MANTLE CELL LYMPHOMA
     Dosage: 560 MILLIGRAM DAILY;
     Route: 042
     Dates: start: 20131107
  15. AMIODARONE [Concomitant]
     Active Substance: AMIODARONE

REACTIONS (3)
  - Sepsis [Recovered/Resolved]
  - Atrial flutter [Recovered/Resolved]
  - Vomiting [Recovered/Resolved]

NARRATIVE: CASE EVENT DATE: 20131118
